FAERS Safety Report 19061442 (Version 2)
Quarter: 2021Q2

REPORT INFORMATION
  Report Type: Spontaneous
  Country: NL (occurrence: NL)
  Receive Date: 20210326
  Receipt Date: 20210408
  Transmission Date: 20210717
  Serious: Yes (Life-Threatening, Hospitalization, Other)
  Sender: FDA-Public Use
  Company Number: NVSC2021NL069125

PATIENT
  Age: 59 Year
  Sex: Female
  Weight: 73 kg

DRUGS (11)
  1. PREDNISONE. [Suspect]
     Active Substance: PREDNISONE
     Dosage: 30 MG, Q12H (2X30 MG OF PREDNISONE)
     Route: 065
     Dates: start: 201910
  2. DUPILUMAB [Suspect]
     Active Substance: DUPILUMAB
     Indication: EOSINOPHILIC GRANULOMATOSIS WITH POLYANGIITIS
     Dosage: 2ND INJECTION: 1X300 MG SC?STOPPED
     Route: 058
     Dates: start: 20190918, end: 20190918
  3. PREDNISONE. [Suspect]
     Active Substance: PREDNISONE
     Dosage: 20 MG QD
     Route: 065
  4. MEPOLIZUMAB [Concomitant]
     Active Substance: MEPOLIZUMAB
     Indication: ASTHMA
     Dosage: UNK
     Route: 065
  5. PREDNISONE. [Suspect]
     Active Substance: PREDNISONE
     Dosage: 15 MG, QD
     Route: 065
  6. PREDNISONE. [Suspect]
     Active Substance: PREDNISONE
     Indication: ASTHMA
     Dosage: UNK
     Route: 065
     Dates: start: 201909
  7. PREDNISONE. [Suspect]
     Active Substance: PREDNISONE
     Dosage: 5 MG QD
     Route: 065
  8. BENRALIZUMAB. [Concomitant]
     Active Substance: BENRALIZUMAB
     Indication: ASTHMA
     Dosage: UNK
     Route: 065
  9. PREDNISONE. [Suspect]
     Active Substance: PREDNISONE
     Dosage: 10 MG QD
     Route: 065
  10. DUPILUMAB [Suspect]
     Active Substance: DUPILUMAB
     Indication: ASTHMA
     Dosage: 600 MG, 1ST INJECTION: 1X600 MG SC
     Route: 058
     Dates: start: 20190904, end: 20190904
  11. PREDNISONE. [Suspect]
     Active Substance: PREDNISONE
     Dosage: 10 MG QD
     Route: 065

REACTIONS (24)
  - Cough [Recovering/Resolving]
  - Oropharyngeal pain [Recovering/Resolving]
  - Malaise [Recovering/Resolving]
  - Muscular weakness [Recovered/Resolved]
  - Condition aggravated [Recovering/Resolving]
  - Disturbance in attention [Recovered/Resolved]
  - Eosinophil count increased [Recovering/Resolving]
  - Pyrexia [Recovering/Resolving]
  - Fatigue [Recovering/Resolving]
  - Nervous system disorder [Recovered/Resolved]
  - Chronic sinusitis [Recovering/Resolving]
  - Eosinophilia [Recovering/Resolving]
  - Eosinophilic granulomatosis with polyangiitis [Recovering/Resolving]
  - Eosinophilic pneumonia [Recovering/Resolving]
  - Rebound effect [Recovering/Resolving]
  - Dysarthria [Recovered/Resolved]
  - Dyspnoea [Recovering/Resolving]
  - Dyspnoea exertional [Not Recovered/Not Resolved]
  - Facial pain [Recovering/Resolving]
  - Arthralgia [Not Recovered/Not Resolved]
  - Cardiac arrest [Recovered/Resolved]
  - Cerebral ischaemia [Recovered/Resolved]
  - Acute coronary syndrome [Unknown]
  - Cerebral infarction [Recovered/Resolved]

NARRATIVE: CASE EVENT DATE: 201909
